FAERS Safety Report 12565159 (Version 1)
Quarter: 2016Q3

REPORT INFORMATION
  Report Type: Spontaneous
  Country: US (occurrence: US)
  Receive Date: 20160718
  Receipt Date: 20160718
  Transmission Date: 20161109
  Serious: No
  Sender: FDA-Public Use
  Company Number: US-PFIZER INC-2016321256

PATIENT
  Age: 52 Year
  Sex: Male

DRUGS (1)
  1. SUTENT [Suspect]
     Active Substance: SUNITINIB MALATE
     Indication: RENAL CANCER
     Dosage: 50 MG, CYCLIC (28 DAYS AND OFF 14 DAYS)
     Route: 048
     Dates: start: 20160224

REACTIONS (3)
  - Genital rash [Unknown]
  - Odynophagia [Unknown]
  - Palmar-plantar erythrodysaesthesia syndrome [Unknown]
